FAERS Safety Report 13027023 (Version 2)
Quarter: 2017Q1

REPORT INFORMATION
  Report Type: Report from Study
  Country: US (occurrence: US)
  Receive Date: 20161214
  Receipt Date: 20170104
  Transmission Date: 20170428
  Serious: No
  Sender: FDA-Public Use
  Company Number: US-AMGEN-USASL2016174650

PATIENT
  Age: 76 Year
  Sex: Female
  Weight: 73.92 kg

DRUGS (1)
  1. REPATHA [Suspect]
     Active Substance: EVOLOCUMAB
     Indication: LIPIDS INCREASED
     Dosage: UNK UNK, Q2WK
     Route: 058
     Dates: start: 20151020

REACTIONS (1)
  - Myalgia [Unknown]
